FAERS Safety Report 17050538 (Version 1)
Quarter: 2019Q4

REPORT INFORMATION
  Report Type: Spontaneous
  Country: CA (occurrence: CA)
  Receive Date: 20191119
  Receipt Date: 20191119
  Transmission Date: 20200122
  Serious: Yes (Other)
  Sender: FDA-Public Use
  Company Number: CA-BEH-2019109544

PATIENT
  Sex: Female

DRUGS (1)
  1. PRIVIGEN [Suspect]
     Active Substance: HUMAN IMMUNOGLOBULIN G
     Indication: PRODUCT USED FOR UNKNOWN INDICATION
     Dosage: UNK
     Route: 065
     Dates: start: 20190909, end: 20190910

REACTIONS (5)
  - Musculoskeletal stiffness [Unknown]
  - Nausea [Unknown]
  - Headache [Unknown]
  - Meningitis aseptic [Unknown]
  - Vomiting [Unknown]

NARRATIVE: CASE EVENT DATE: 20190911
